FAERS Safety Report 9281112 (Version 1)
Quarter: 2013Q2

REPORT INFORMATION
  Report Type: Spontaneous
  Country: US (occurrence: None)
  Receive Date: 20130508
  Receipt Date: 20130508
  Transmission Date: 20140414
  Serious: Yes (Hospitalization)
  Sender: FDA-Public Use
  Company Number: None

PATIENT
  Age: 60 Year
  Sex: Male
  Weight: 52 kg

DRUGS (1)
  1. CISPLATIN [Suspect]
     Route: 042
     Dates: start: 20121219, end: 20121220

REACTIONS (3)
  - Renal failure acute [None]
  - Nausea [None]
  - Vomiting [None]
